FAERS Safety Report 9097809 (Version 1)
Quarter: 2013Q1

REPORT INFORMATION
  Report Type: Spontaneous
  Country: US (occurrence: US)
  Receive Date: 20130212
  Receipt Date: 20130212
  Transmission Date: 20140127
  Serious: Yes (Hospitalization)
  Sender: FDA-Public Use
  Company Number: US-BRISTOL-MYERS SQUIBB COMPANY-17339524

PATIENT
  Age: 42 Year
  Sex: Female

DRUGS (2)
  1. ORENCIA [Suspect]
  2. METHOTREXATE [Suspect]

REACTIONS (1)
  - Pancreatitis [Unknown]
